FAERS Safety Report 8954603 (Version 2)
Quarter: 2012Q4

REPORT INFORMATION
  Report Type: Report from Study
  Country: DE (occurrence: DE)
  Receive Date: 20121207
  Receipt Date: 20121227
  Transmission Date: 20130627
  Serious: Yes (Hospitalization)
  Sender: FDA-Public Use
  Company Number: DE-OTSUKA-EU-2011-10241

PATIENT
  Sex: Male

DRUGS (51)
  1. SAMSCA [Suspect]
     Indication: INAPPROPRIATE ANTIDIURETIC HORMONE SECRETION
     Dosage: 15 Mg milligram(s), daily dose
     Route: 048
     Dates: start: 20110325, end: 20110329
  2. SAMSCA [Suspect]
     Dosage: 7.5 Mg milligram(s), qod
     Route: 048
     Dates: start: 20110330, end: 20110525
  3. SALBUTAMOL [Concomitant]
     Indication: CHRONIC OBSTRUCTIVE PULMONARY DISEASE
     Dosage: 200 Mg milligram(s), prn
     Route: 050
     Dates: start: 20110309
  4. ZITHROMAX [Concomitant]
     Indication: PNEUMONIA
     Dosage: 500 Mg milligram(s), daily dose
     Route: 048
     Dates: start: 20110311, end: 20110313
  5. ROCEPHIN [Concomitant]
     Indication: PNEUMONIA
     Dosage: 2 G gram(s), daily dose
     Route: 042
     Dates: start: 20110317, end: 20110317
  6. ROCEPHIN [Concomitant]
     Dosage: 4 G gram(s), daily dose
     Route: 042
     Dates: start: 20110318, end: 20110322
  7. VFEND [Concomitant]
     Indication: FUNGAL INFECTION
     Dosage: 200 Mg milligram(s), daily dose
     Route: 042
     Dates: start: 20110317, end: 20110317
  8. VFEND [Concomitant]
     Dosage: 400 Mg milligram(s), daily dose
     Route: 042
     Dates: start: 20110318, end: 20110322
  9. PANTOPRAZOLE [Concomitant]
     Indication: PROPHYLAXIS
     Dosage: 40 Mg milligram(s), daily dose
     Route: 042
     Dates: start: 20110317, end: 20110322
  10. PANTOPRAZOLE [Concomitant]
     Dosage: 40 Mg milligram(s), daily dose
     Route: 048
     Dates: start: 20110322, end: 20110329
  11. PREDNISOLON [Concomitant]
     Indication: CHRONIC OBSTRUCTIVE PULMONARY DISEASE
     Dosage: 20 Mg milligram(s), daily dose
     Route: 048
     Dates: start: 20110317, end: 20110317
  12. PREDNISOLON [Concomitant]
     Dosage: 50 Mg milligram(s), daily dose
     Route: 048
     Dates: start: 20110318, end: 20110321
  13. PREDNISOLON [Concomitant]
     Dosage: 30 Mg milligram(s), daily dose
     Route: 048
     Dates: start: 20110322, end: 20110323
  14. PREDNISOLON [Concomitant]
     Dosage: 20 Mg milligram(s), daily dose
     Dates: start: 20110324, end: 20110327
  15. PROGRAF [Concomitant]
     Indication: IMMUNOSUPPRESSION
     Dosage: 0.5 Mg milligram(s), daily dose
     Route: 048
     Dates: start: 20110318, end: 20110328
  16. PROGRAF [Concomitant]
     Indication: RENAL TRANSPLANT
  17. COTRIM FORTE [Concomitant]
     Indication: PROPHYLAXIS
     Dosage: 1 DF dosage form, tiw
     Route: 048
     Dates: start: 20110318, end: 20110329
  18. CONCOR [Concomitant]
     Indication: HYPERTENSION
     Dosage: 2.5 Mg milligram(s), daily dose
     Route: 048
     Dates: start: 20110317, end: 20110317
  19. CONCOR [Concomitant]
     Dosage: 5 Mg milligram(s), daily dose
     Route: 048
     Dates: start: 20110318, end: 20110329
  20. NORVASC [Concomitant]
     Indication: HYPERTENSION
     Dosage: 5 Mg milligram(s), daily dose
     Route: 048
     Dates: start: 20110317, end: 20110317
  21. NORVASC [Concomitant]
     Dosage: 10 Mg milligram(s), daily dose
     Route: 048
     Dates: start: 20110318, end: 20110329
  22. TOREM [Concomitant]
     Indication: RENAL FAILURE
     Dosage: 80 Mg milligram(s), daily dose
     Route: 048
     Dates: start: 20110318, end: 20110328
  23. TOREM [Concomitant]
     Dosage: 40 Mg milligram(s), daily dose
     Route: 048
     Dates: start: 20110329, end: 20110329
  24. VIANI [Concomitant]
     Indication: CHRONIC OBSTRUCTIVE PULMONARY DISEASE
     Dosage: 2 DF dosage form, daily dose
     Route: 050
     Dates: start: 20110319, end: 20110329
  25. SULTANOL [Concomitant]
     Indication: CHRONIC OBSTRUCTIVE PULMONARY DISEASE
     Dosage: 1 DF dosage form, unknown
     Route: 050
     Dates: start: 20110317, end: 20110317
  26. SULTANOL [Concomitant]
     Dosage: 4 DF dosage form, unknown
     Route: 050
     Dates: start: 20110318, end: 20110329
  27. ATROVENT [Concomitant]
     Indication: CHRONIC OBSTRUCTIVE PULMONARY DISEASE
     Dosage: 1 DF dosage form, unknown
     Route: 050
     Dates: start: 20110317, end: 20110317
  28. ATROVENT [Concomitant]
     Dosage: 4 DF dosage form, unknown
     Route: 050
     Dates: start: 20110318, end: 20110329
  29. SPIRIVA [Concomitant]
     Indication: CHRONIC OBSTRUCTIVE PULMONARY DISEASE
     Dosage: 1 DF dosage form, daily dose
     Route: 050
     Dates: start: 20110318, end: 20110329
  30. ALNA [Concomitant]
     Indication: BENIGN PROSTATIC HYPERPLASIA
     Dosage: 0.4 Mg milligram(s), daily dose
     Route: 048
     Dates: start: 20110323, end: 20110329
  31. FRAGMIN P [Concomitant]
     Indication: THROMBOSIS PROPHYLAXIS
     Dosage: 5000 Iu, daily dose
     Route: 058
     Dates: start: 20110317, end: 20110317
  32. FRAGMIN P [Concomitant]
     Dosage: 10000 Iu, daily dose
     Route: 058
     Dates: start: 20110318, end: 20110329
  33. OXAZEPAM [Concomitant]
     Indication: INSOMNIA
     Dosage: 10 Mg milligram(s), prn
     Route: 048
     Dates: start: 20110317, end: 20110322
  34. OXAZEPAM [Concomitant]
     Dosage: 10 Mg milligram(s), prn
     Route: 048
     Dates: start: 20110324, end: 20110327
  35. AMPHO MORONAL [Concomitant]
     Indication: FUNGAL INFECTION
     Dosage: 4 DF dosage form, daily dose
     Route: 048
     Dates: start: 20110324, end: 20110329
  36. UNACID PD [Concomitant]
     Indication: PNEUMONIA
     Dosage: 750 Mg milligram(s), daily dose
     Route: 048
     Dates: start: 20110324, end: 20110324
  37. UNACID PD [Concomitant]
     Dosage: 1500 Mg milligram(s), daily dose
     Route: 048
     Dates: start: 20110325, end: 20110328
  38. CLONT [Concomitant]
     Indication: CLOSTRIDIUM DIFFICILE COLITIS
     Dosage: 1200 Mg milligram(s), daily dose
     Route: 048
     Dates: start: 20110521, end: 20110524
  39. SALINE [Concomitant]
     Dosage: 462 mEq, unknown
     Dates: start: 20110311
  40. SALINE [Concomitant]
     Dosage: 308 mEq, unknown
     Dates: start: 20110317
  41. SALINE [Concomitant]
     Dosage: 154 mEq, unknown
     Dates: start: 20110315
  42. SALINE [Concomitant]
     Dosage: 77 mEq, unknown
     Dates: start: 20110314
  43. SALINE [Concomitant]
     Dosage: 154 mEq, unknown
     Dates: start: 20110310
  44. SALINE [Concomitant]
     Dosage: 77 mEq, unknown
     Dates: start: 20110318, end: 20110321
  45. SALINE [Concomitant]
     Dosage: 77 mEq, unknown
     Dates: start: 20110328, end: 20110329
  46. PREDNISOLON [Concomitant]
     Indication: CHRONIC OBSTRUCTIVE PULMONARY DISEASE
     Dosage: 10 Mg milligram(s), daily dose
     Route: 048
     Dates: start: 20110330, end: 20110405
  47. PREDNISOLON [Concomitant]
     Indication: RENAL TRANSPLANT
     Dosage: 7.5 Mg milligram(s), daily dose
     Route: 048
     Dates: start: 20110406, end: 20110412
  48. PREDNISOLON [Concomitant]
     Dosage: 5 Mg milligram(s), daily dose
     Route: 048
     Dates: start: 20110413, end: 20110419
  49. PREDNISOLON [Concomitant]
     Indication: RENAL TRANSPLANT
     Dosage: 2.5 Mg milligram(s), daily dose
     Route: 048
     Dates: start: 20110420
  50. PROGRAF [Concomitant]
     Indication: RENAL TRANSPLANT
     Dosage: 0.5 Mg milligram(s), daily dose
     Route: 048
     Dates: start: 20110330, end: 201104
  51. PROGRAF [Concomitant]
     Dosage: 2 Mg milligram(s), daily dose
     Route: 048
     Dates: start: 201104

REACTIONS (7)
  - Renal failure acute [Recovered/Resolved]
  - Tachycardia [Recovered/Resolved]
  - Hyperglycaemia [Recovered/Resolved]
  - Decreased appetite [Recovered/Resolved]
  - Diarrhoea [Recovered/Resolved]
  - Wrong technique in drug usage process [Unknown]
  - Incorrect drug administration rate [None]
